FAERS Safety Report 11868040 (Version 1)
Quarter: 2015Q4

REPORT INFORMATION
  Report Type: Spontaneous
  Country: MY (occurrence: MY)
  Receive Date: 20151224
  Receipt Date: 20151224
  Transmission Date: 20160305
  Serious: Yes (Life-Threatening, Hospitalization)
  Sender: FDA-Public Use
  Company Number: PHHY2015MY165005

PATIENT
  Age: 27 Year
  Sex: Female

DRUGS (1)
  1. WARFARIN [Suspect]
     Active Substance: WARFARIN
     Indication: CARDIAC VALVE REPLACEMENT COMPLICATION
     Route: 065

REACTIONS (3)
  - Splenic rupture [Unknown]
  - Cyst rupture [Unknown]
  - Pelvic haemorrhage [Unknown]
